FAERS Safety Report 9206170 (Version 2)
Quarter: 2013Q2

REPORT INFORMATION
  Report Type: Spontaneous
  Country: US (occurrence: US)
  Receive Date: 20130403
  Receipt Date: 20130506
  Transmission Date: 20140414
  Serious: No
  Sender: FDA-Public Use
  Company Number: US-PFIZER INC-2013103165

PATIENT
  Sex: Female

DRUGS (1)
  1. ALAVERT [Suspect]
     Indication: HYPERSENSITIVITY
     Dosage: 10MG, ONCE A DAY
     Route: 048
     Dates: start: 20130328, end: 20130329

REACTIONS (2)
  - Drug ineffective [Unknown]
  - Product taste abnormal [Unknown]
